APPROVED DRUG PRODUCT: PENTAM
Active Ingredient: PENTAMIDINE ISETHIONATE
Strength: 300MG/VIAL
Dosage Form/Route: INJECTABLE;INJECTION
Application: N019264 | Product #001 | TE Code: AP
Applicant: FRESENIUS KABI USA LLC
Approved: Oct 16, 1984 | RLD: Yes | RS: Yes | Type: RX